FAERS Safety Report 12845890 (Version 6)
Quarter: 2023Q2

REPORT INFORMATION
  Report Type: Spontaneous
  Country: CA (occurrence: None)
  Receive Date: 20161013
  Receipt Date: 20230510
  Transmission Date: 20230721
  Serious: Yes (Other)
  Sender: FDA-Public Use
  Company Number: CA-ROCHE-1586914

PATIENT
  Age: 56 Year
  Sex: Female

DRUGS (33)
  1. RITUXIMAB [Suspect]
     Active Substance: RITUXIMAB
     Indication: Rheumatoid arthritis
     Route: 042
     Dates: start: 201412
  2. RITUXIMAB [Suspect]
     Active Substance: RITUXIMAB
     Route: 042
  3. REMICADE [Suspect]
     Active Substance: INFLIXIMAB
     Indication: Rheumatoid arthritis
     Route: 042
     Dates: end: 2014
  4. HUMIRA [Suspect]
     Active Substance: ADALIMUMAB
     Indication: Rheumatoid arthritis
     Route: 058
  5. ENBREL [Suspect]
     Active Substance: ETANERCEPT
     Indication: Rheumatoid arthritis
     Route: 058
  6. METHOTREXATE SODIUM [Suspect]
     Active Substance: METHOTREXATE SODIUM
     Indication: Rheumatoid arthritis
     Route: 048
  7. ARAVA [Suspect]
     Active Substance: LEFLUNOMIDE
     Indication: Rheumatoid arthritis
     Route: 048
  8. LEFLUNOMIDE [Suspect]
     Active Substance: LEFLUNOMIDE
     Indication: Rheumatoid arthritis
     Route: 048
  9. LEFLUNOMIDE [Suspect]
     Active Substance: LEFLUNOMIDE
     Route: 065
     Dates: start: 201412
  10. ETANERCEPT [Suspect]
     Active Substance: ETANERCEPT
     Indication: Rheumatoid arthritis
     Route: 065
  11. LEFLUNOMIDE [Suspect]
     Active Substance: LEFLUNOMIDE
     Indication: Rheumatoid arthritis
     Route: 065
  12. LEFLUNOMIDE [Suspect]
     Active Substance: LEFLUNOMIDE
     Route: 065
     Dates: start: 201412
  13. ESOMEPRAZOLE MAGNESIUM [Suspect]
     Active Substance: ESOMEPRAZOLE MAGNESIUM
     Indication: Product used for unknown indication
     Route: 048
     Dates: start: 201412
  14. ESOMEPRAZOLE MAGNESIUM [Suspect]
     Active Substance: ESOMEPRAZOLE MAGNESIUM
     Route: 048
     Dates: start: 201412
  15. METHOTREXATE [Suspect]
     Active Substance: METHOTREXATE
     Indication: Rheumatoid arthritis
     Route: 048
     Dates: start: 201412
  16. ERELZI [Suspect]
     Active Substance: ETANERCEPT-SZZS
     Indication: Rheumatoid arthritis
     Route: 065
  17. XELJANZ [Concomitant]
     Active Substance: TOFACITINIB CITRATE
     Indication: Rheumatoid arthritis
     Route: 048
     Dates: start: 20150708
  18. XELJANZ [Concomitant]
     Active Substance: TOFACITINIB CITRATE
     Route: 048
  19. LYRICA [Concomitant]
     Active Substance: PREGABALIN
     Route: 065
  20. LYRICA [Concomitant]
     Active Substance: PREGABALIN
     Route: 065
  21. DETROL LA [Concomitant]
     Active Substance: TOLTERODINE TARTRATE
     Route: 065
  22. DETROL LA [Concomitant]
     Active Substance: TOLTERODINE TARTRATE
     Route: 065
  23. VIMOVO [Concomitant]
     Active Substance: ESOMEPRAZOLE MAGNESIUM\NAPROXEN
  24. PREDNISONE [Concomitant]
     Active Substance: PREDNISONE
     Route: 048
  25. PREDNISONE [Concomitant]
     Active Substance: PREDNISONE
     Route: 048
  26. PLAQUENIL [Concomitant]
     Active Substance: HYDROXYCHLOROQUINE SULFATE
     Indication: Rheumatoid arthritis
  27. ORENCIA [Concomitant]
     Active Substance: ABATACEPT
     Indication: Rheumatoid arthritis
     Route: 042
  28. ESOMEPRAZOLE MAGNESIUM [Concomitant]
     Active Substance: ESOMEPRAZOLE MAGNESIUM
     Route: 048
  29. ESOMEPRAZOLE MAGNESIUM [Concomitant]
     Active Substance: ESOMEPRAZOLE MAGNESIUM
     Route: 048
  30. NAPROXEN [Concomitant]
     Active Substance: NAPROXEN
     Route: 048
  31. NAPROXEN [Concomitant]
     Active Substance: NAPROXEN
     Route: 048
  32. HYDROXYCHLOROQUINE [Concomitant]
     Active Substance: HYDROXYCHLOROQUINE
     Indication: Rheumatoid arthritis
     Route: 065
  33. HYDROXYCHLOROQUINE SULFATE [Concomitant]
     Active Substance: HYDROXYCHLOROQUINE SULFATE
     Indication: Rheumatoid arthritis
     Route: 065

REACTIONS (18)
  - Adverse drug reaction [Not Recovered/Not Resolved]
  - Diarrhoea [Not Recovered/Not Resolved]
  - Alopecia [Not Recovered/Not Resolved]
  - Arthralgia [Not Recovered/Not Resolved]
  - Sensitivity to weather change [Not Recovered/Not Resolved]
  - Alopecia [Not Recovered/Not Resolved]
  - Diarrhoea [Not Recovered/Not Resolved]
  - Gastrointestinal disorder [Not Recovered/Not Resolved]
  - Joint swelling [Not Recovered/Not Resolved]
  - Rash [Not Recovered/Not Resolved]
  - Therapy non-responder [Not Recovered/Not Resolved]
  - Arthralgia [Unknown]
  - Drug ineffective [Unknown]
  - Joint swelling [Unknown]
  - Drug ineffective [Unknown]
  - Drug ineffective [Unknown]
  - Drug ineffective [Unknown]
  - Condition aggravated [Not Recovered/Not Resolved]
